FAERS Safety Report 18182447 (Version 1)
Quarter: 2020Q3

REPORT INFORMATION
  Report Type: Spontaneous
  Country: NL (occurrence: NL)
  Receive Date: 20200821
  Receipt Date: 20200821
  Transmission Date: 20201103
  Serious: Yes (Other)
  Sender: FDA-Public Use
  Company Number: NL-MYLANLABS-2020M1072835

PATIENT
  Age: 62 Year
  Sex: Male

DRUGS (1)
  1. METFORMIN [Suspect]
     Active Substance: METFORMIN HYDROCHLORIDE
     Indication: TYPE 2 DIABETES MELLITUS
     Route: 065

REACTIONS (2)
  - Lichen planus [Recovered/Resolved]
  - Pemphigoid [Recovered/Resolved]
